FAERS Safety Report 14859535 (Version 1)
Quarter: 2018Q2

REPORT INFORMATION
  Report Type: Spontaneous
  Country: US (occurrence: US)
  Receive Date: 20180508
  Receipt Date: 20180508
  Transmission Date: 20180711
  Serious: No
  Sender: FDA-Public Use
  Company Number: US-PFIZER INC-2018006632

PATIENT
  Age: 67 Year
  Sex: Female
  Weight: 97.51 kg

DRUGS (6)
  1. TAXOTERE [Suspect]
     Active Substance: DOCETAXEL
     Indication: BREAST CANCER
     Dosage: 120-150 MG, EVERY 3 WEEKS (6 CYCLES)
     Dates: start: 20130408, end: 20130722
  2. CITALOPRAM [Concomitant]
     Active Substance: CITALOPRAM HYDROBROMIDE
     Indication: CHEMOTHERAPY
     Dosage: UNK
     Dates: start: 2006
  3. DOCETAXEL. [Suspect]
     Active Substance: DOCETAXEL
     Indication: BREAST CANCER
     Dosage: 120-150 MG, EVERY 3 WEEKS (6 CYCLES)
     Dates: start: 20130408, end: 20130722
  4. PARAPLATIN [Concomitant]
     Active Substance: CARBOPLATIN
     Indication: CHEMOTHERAPY
     Dosage: UNK
  5. DOCETAXEL. [Suspect]
     Active Substance: DOCETAXEL
     Indication: CHEMOTHERAPY
  6. TAXOTERE [Suspect]
     Active Substance: DOCETAXEL
     Indication: CHEMOTHERAPY

REACTIONS (4)
  - Alopecia [Unknown]
  - Hair disorder [Unknown]
  - Hair texture abnormal [Unknown]
  - Madarosis [Unknown]

NARRATIVE: CASE EVENT DATE: 2014
